FAERS Safety Report 7502254-1 (Version None)
Quarter: 2011Q2

REPORT INFORMATION
  Report Type: 
  Country: None (occurrence: None)
  Receive Date: 20110525
  Receipt Date: 20110520
  Transmission Date: 20111010
  Serious: Yes (Hospitalization)
  Sender: FDA-Public Use
  Company Number: US-AMGEN-USASP2011026445

PATIENT
  Sex: Female

DRUGS (4)
  1. NEULASTA [Suspect]
     Indication: CHEMOTHERAPY
  2. NEUPOGEN [Suspect]
     Indication: CHEMOTHERAPY
  3. TAXOL [Concomitant]
     Dosage: UNK, Q3WK
  4. CARBOPLATIN [Concomitant]
     Dosage: UNK, Q3WK

REACTIONS (8)
  - NEUTROPHIL COUNT DECREASED [None]
  - BONE PAIN [None]
  - WHITE BLOOD CELL COUNT DECREASED [None]
  - PARAESTHESIA [None]
  - CYTOREDUCTIVE SURGERY [None]
  - MICROALBUMINURIA [None]
  - FATIGUE [None]
  - PLATELET COUNT ABNORMAL [None]
